FAERS Safety Report 24856268 (Version 2)
Quarter: 2025Q1

REPORT INFORMATION
  Report Type: Spontaneous
  Country: BR (occurrence: BR)
  Receive Date: 20250117
  Receipt Date: 20250220
  Transmission Date: 20250409
  Serious: Yes (Hospitalization, Other)
  Sender: PFIZER
  Company Number: BR-PFIZER INC-202400062419

PATIENT
  Age: 44 Year
  Sex: Male

DRUGS (1)
  1. GENOTROPIN [Suspect]
     Active Substance: SOMATROPIN

REACTIONS (3)
  - Accident [Unknown]
  - Sarcopenia [Unknown]
  - Aortic dissection [Unknown]

NARRATIVE: CASE EVENT DATE: 20240701
